FAERS Safety Report 9001829 (Version 2)
Quarter: 2013Q4

REPORT INFORMATION
  Report Type: Report from Study
  Country: GB (occurrence: GB)
  Receive Date: 20130107
  Receipt Date: 20131022
  Transmission Date: 20140711
  Serious: Yes (Hospitalization)
  Sender: FDA-Public Use
  Company Number: GB-ROCHE-1176942

PATIENT
  Sex: Female
  Weight: 68 kg

DRUGS (2)
  1. RITUXIMAB [Suspect]
     Indication: RHEUMATOID ARTHRITIS
     Dosage: DAT EOF LAST DOSE PRIOR TO SAE: 31/JAN/2012
     Route: 065
     Dates: start: 20100427
  2. METHOTREXATE [Concomitant]

REACTIONS (5)
  - Fall [Unknown]
  - Loss of consciousness [Unknown]
  - Back pain [Unknown]
  - Back pain [Unknown]
  - Musculoskeletal pain [Unknown]
